FAERS Safety Report 18306741 (Version 3)
Quarter: 2021Q1

REPORT INFORMATION
  Report Type: Report from Study
  Country: GB (occurrence: GB)
  Receive Date: 20200924
  Receipt Date: 20210317
  Transmission Date: 20210419
  Serious: Yes (Other)
  Sender: FDA-Public Use
  Company Number: NVSC2020GB256665

PATIENT
  Sex: Female

DRUGS (2)
  1. METHOTREXATE. [Suspect]
     Active Substance: METHOTREXATE
     Indication: PRODUCT USED FOR UNKNOWN INDICATION
     Dosage: UNK
     Route: 065
  2. HYRIMOZ [Suspect]
     Active Substance: ADALIMUMAB-ADAZ
     Indication: PSORIATIC ARTHROPATHY
     Dosage: 1 DF, EOW
     Route: 065
     Dates: start: 20190211

REACTIONS (6)
  - Sleep disorder [Unknown]
  - Dry skin [Unknown]
  - Dry mouth [Recovered/Resolved]
  - Pain in extremity [Unknown]
  - Psoriatic arthropathy [Unknown]
  - Oral pain [Recovered/Resolved]
